FAERS Safety Report 4321915-9 (Version None)
Quarter: 2004Q1

REPORT INFORMATION
  Report Type: 
  Country: None (occurrence: None)
  Receive Date: 20040319
  Receipt Date: 20031124
  Transmission Date: 20041129
  Serious: No
  Sender: FDA-Public Use
  Company Number: 200313845

PATIENT
  Age: 59 Year
  Sex: Female
  Weight: 90.7194 kg

DRUGS (7)
  1. LUMIGAN [Suspect]
     Indication: OCULAR HYPERTENSION
     Dosage: 2 DROP QD EYE
     Route: 047
     Dates: start: 20031118
  2. ALLEGRA [Concomitant]
  3. LIPITOR [Concomitant]
  4. MOBIC [Concomitant]
  5. COZAAR [Concomitant]
  6. LEVOXYL [Concomitant]
  7. BACITRACIN [Concomitant]

REACTIONS (1)
  - VISION BLURRED [None]
